FAERS Safety Report 9890744 (Version 1)
Quarter: 2014Q1

REPORT INFORMATION
  Report Type: Spontaneous
  Country: FR (occurrence: None)
  Receive Date: 20140210
  Receipt Date: 20140210
  Transmission Date: 20141002
  Serious: Yes (Hospitalization, Other)
  Sender: FDA-Public Use
  Company Number: AUR-APL-2014-01327

PATIENT
  Age: 24 Year
  Sex: Male

DRUGS (8)
  1. LAMOTRIGINE (LAMOTRIGINE) [Suspect]
     Indication: PRODUCT USED FOR UNKNOWN INDICATION
     Dosage: (100 MG, 2 IN 1 D)
     Route: 048
  2. ATARAX (HYDROXYZINE) [Suspect]
     Indication: ANXIETY
     Route: 048
  3. KEPPRA (LEVETIRACETAM) [Suspect]
     Indication: EPILEPSY
     Dosage: (500 MG, 6 IN 1 D)
     Route: 048
  4. ABILIFY (ARIPIPRAZOLE) [Suspect]
     Indication: PRODUCT USED FOR UNKNOWN INDICATION
     Dosage: (10 MG, 2 IN 1 D)
     Route: 048
     Dates: start: 20100407
  5. TEGRETOL (CARBAMAZEPINE) UNKNOWN [Suspect]
     Indication: EPILEPSY
     Dosage: (200 MG, 3 IN 1 D)
     Route: 048
  6. URBANYL [Suspect]
     Indication: EPILEPSY
     Dosage: (10 MG, 6 IN 1 D)
     Route: 048
  7. THERALENE [Suspect]
     Indication: INSOMNIA
     Dosage: 1 IN 1 D
     Route: 048
  8. TRANXENE (CLORAZEPATE DIPOTASSIUM) (CAPSULES) (CLORAZEPATE DIPOTASSIUM) [Suspect]
     Indication: ANXIETY
     Dosage: (20 MG, 3 IN 1 D)
     Route: 048

REACTIONS (3)
  - Abnormal behaviour [None]
  - Bradycardia [None]
  - Electrocardiogram QT prolonged [None]
